FAERS Safety Report 4446602-8 (Version None)
Quarter: 2004Q3

REPORT INFORMATION
  Report Type: 
  Country: None (occurrence: None)
  Receive Date: 20040910
  Receipt Date: 20040623
  Transmission Date: 20050211
  Serious: Yes (Hospitalization)
  Sender: FDA-Public Use
  Company Number: JP-MERCK-0406USA02453

PATIENT
  Age: 30 Year
  Sex: Female

DRUGS (6)
  1. ACETAMINOPHEN [Suspect]
     Indication: PYREXIA
     Route: 048
     Dates: start: 20040602
  2. EXCELASE [Suspect]
     Indication: DECREASED APPETITE
     Route: 048
     Dates: start: 20040603, end: 20040609
  3. DIPYRIDAMOLE [Concomitant]
     Route: 048
     Dates: start: 20040602, end: 20040604
  4. PEPCID [Suspect]
     Indication: GASTRIC ULCER
     Route: 048
     Dates: start: 20040604, end: 20040609
  5. HIBON [Suspect]
     Indication: VITAMIN SUPPLEMENTATION
     Route: 048
     Dates: start: 20040603, end: 20040609
  6. KETEK [Suspect]
     Route: 048
     Dates: start: 20040401, end: 20040501

REACTIONS (3)
  - CONDITION AGGRAVATED [None]
  - EOSINOPHIL COUNT INCREASED [None]
  - HEPATITIS [None]
